FAERS Safety Report 8473265-7 (Version None)
Quarter: 2012Q2

REPORT INFORMATION
  Report Type: 
  Country: None (occurrence: None)
  Receive Date: 20120627
  Receipt Date: 20120622
  Transmission Date: 20120825
  Serious: Yes (Hospitalization)
  Sender: FDA-Public Use
  Company Number: AT-ABBOTT-11P-009-0727309-00

PATIENT
  Age: 56 Year
  Sex: Male
  Weight: 73 kg

DRUGS (17)
  1. EBRANTIL [Concomitant]
     Indication: PRODUCT USED FOR UNKNOWN INDICATION
     Route: 048
  2. RENAGEL [Concomitant]
     Indication: HYPERPARATHYROIDISM SECONDARY
  3. ERYPO [Concomitant]
     Indication: PRODUCT USED FOR UNKNOWN INDICATION
     Dosage: 10000 IE
     Route: 058
  4. VENOFER [Concomitant]
     Indication: PRODUCT USED FOR UNKNOWN INDICATION
     Route: 042
     Dates: start: 20110610
  5. PANTOPRAZOLE SODIUM [Concomitant]
     Indication: PRODUCT USED FOR UNKNOWN INDICATION
     Route: 048
     Dates: start: 20101021
  6. SUPRESSIN [Concomitant]
     Indication: PRODUCT USED FOR UNKNOWN INDICATION
     Route: 048
     Dates: start: 20110610
  7. SODIUM POLYSTYRENE SULFONATE [Concomitant]
     Indication: PRODUCT USED FOR UNKNOWN INDICATION
     Dosage: PULVER AS NEEDED
     Route: 048
     Dates: start: 20110610
  8. ASPIRIN [Concomitant]
     Indication: PRODUCT USED FOR UNKNOWN INDICATION
     Route: 048
     Dates: start: 20101021
  9. AMLODIPINE [Concomitant]
     Indication: PRODUCT USED FOR UNKNOWN INDICATION
     Route: 048
  10. NOVOLOG MIX 70/30 [Concomitant]
     Indication: PRODUCT USED FOR UNKNOWN INDICATION
     Dosage: 100 E/ML
     Route: 058
  11. RENAGEL [Concomitant]
     Route: 048
  12. ROCALTROL [Concomitant]
     Indication: HYPERPARATHYROIDISM SECONDARY
  13. CARVEDILOL [Concomitant]
     Indication: PRODUCT USED FOR UNKNOWN INDICATION
     Route: 048
     Dates: start: 20101021
  14. ROCALTROL [Concomitant]
     Route: 048
  15. PARICALCITOL [Suspect]
     Indication: RENAL FAILURE CHRONIC
     Dates: start: 20101021, end: 20120406
  16. CONCOR [Concomitant]
     Indication: PRODUCT USED FOR UNKNOWN INDICATION
     Route: 048
  17. HALCION [Concomitant]
     Indication: PRODUCT USED FOR UNKNOWN INDICATION
     Route: 048
     Dates: start: 20101230

REACTIONS (4)
  - DIZZINESS [None]
  - VOMITING [None]
  - DYSPNOEA [None]
  - CORONARY ARTERY DISEASE [None]
